FAERS Safety Report 7337584-X (Version None)
Quarter: 2011Q1

REPORT INFORMATION
  Report Type: 
  Country: None (occurrence: None)
  Receive Date: 20110308
  Receipt Date: 20110301
  Transmission Date: 20110831
  Serious: Yes (Other)
  Sender: FDA-Public Use
  Company Number: US-JNJFOC-20101209243

PATIENT
  Sex: Female
  Weight: 67.13 kg

DRUGS (2)
  1. LEVAQUIN [Suspect]
     Indication: URINARY TRACT INFECTION
     Route: 048
  2. AZO-DYE [Concomitant]
     Indication: BLADDER PAIN
     Route: 065

REACTIONS (8)
  - EXTRASYSTOLES [None]
  - DYSPNOEA [None]
  - TREMOR [None]
  - FEELING JITTERY [None]
  - NERVOUSNESS [None]
  - PHOTOPSIA [None]
  - CHEST DISCOMFORT [None]
  - DIZZINESS [None]
